FAERS Safety Report 7462782-4 (Version None)
Quarter: 2011Q2

REPORT INFORMATION
  Report Type: 
  Country: None (occurrence: None)
  Receive Date: 20110506
  Receipt Date: 20110503
  Transmission Date: 20111010
  Serious: Yes (Other)
  Sender: FDA-Public Use
  Company Number: US-PFIZER INC-2010078343

PATIENT
  Sex: Female

DRUGS (2)
  1. CHANTIX [Suspect]
     Indication: SMOKING CESSATION THERAPY
     Dosage: 0.5 MG, UNK
     Route: 048
     Dates: start: 20061201, end: 20070301
  2. CHANTIX [Suspect]
     Dosage: 1 MG, UNK
     Dates: start: 20071201

REACTIONS (7)
  - SUICIDAL IDEATION [None]
  - HOMICIDAL IDEATION [None]
  - ANXIETY [None]
  - BIPOLAR DISORDER [None]
  - MENTAL DISORDER [None]
  - DEPRESSION [None]
  - AGGRESSION [None]
